FAERS Safety Report 11462964 (Version 1)
Quarter: 2015Q3

REPORT INFORMATION
  Report Type: Spontaneous
  Country: US (occurrence: US)
  Receive Date: 20150831
  Receipt Date: 20150831
  Transmission Date: 20151125
  Serious: Yes (Other)
  Sender: FDA-Public Use
  Company Number: US-ELI_LILLY_AND_COMPANY-US201102005170

PATIENT
  Age: 37 Year
  Sex: Female
  Weight: 54.42 kg

DRUGS (4)
  1. CYMBALTA [Suspect]
     Active Substance: DULOXETINE HYDROCHLORIDE
     Indication: DEPRESSION
     Dosage: 30 MG, DAILY (1/D)
     Dates: start: 201008
  2. SEROQUEL [Concomitant]
     Active Substance: QUETIAPINE FUMARATE
     Dates: start: 20110213
  3. CYMBALTA [Suspect]
     Active Substance: DULOXETINE HYDROCHLORIDE
     Dosage: 60 MG, DAILY (1/D)
     Dates: start: 201009, end: 201101
  4. VYVANSE [Concomitant]
     Active Substance: LISDEXAMFETAMINE DIMESYLATE
     Dosage: 30 MG, UNK
     Dates: end: 201101

REACTIONS (17)
  - Thinking abnormal [Unknown]
  - Emotional disorder [Unknown]
  - Judgement impaired [Unknown]
  - Feeling abnormal [Recovered/Resolved]
  - Decreased appetite [Unknown]
  - Mania [Recovered/Resolved]
  - Psychotic disorder [Unknown]
  - Inguinal hernia [Recovered/Resolved]
  - Drug interaction [Unknown]
  - Suicidal ideation [Unknown]
  - Delusion [Unknown]
  - Social avoidant behaviour [Unknown]
  - Agitation [Unknown]
  - Drug ineffective [Recovered/Resolved]
  - Malaise [Unknown]
  - Depression [Not Recovered/Not Resolved]
  - Paranoia [Recovered/Resolved]

NARRATIVE: CASE EVENT DATE: 201009
